FAERS Safety Report 6511218-6 (Version None)
Quarter: 2009Q4

REPORT INFORMATION
  Report Type: 
  Country: None (occurrence: None)
  Receive Date: 20091222
  Receipt Date: 20090227
  Transmission Date: 20100525
  Serious: Yes (Other)
  Sender: FDA-Public Use
  Company Number: US-ASTRAZENECA-2009UW05501

PATIENT
  Age: 45 Year
  Sex: Male

DRUGS (3)
  1. CRESTOR [Suspect]
     Route: 048
     Dates: start: 20071101
  2. CRESTOR [Suspect]
     Route: 048
  3. TESTOSTERONE [Concomitant]
     Route: 065

REACTIONS (2)
  - ALANINE AMINOTRANSFERASE INCREASED [None]
  - ASPARTATE AMINOTRANSFERASE INCREASED [None]
